FAERS Safety Report 7898971-4 (Version None)
Quarter: 2011Q4

REPORT INFORMATION
  Report Type: 
  Country: None (occurrence: None)
  Receive Date: 20111107
  Receipt Date: 20111102
  Transmission Date: 20120403
  Serious: Yes (Hospitalization)
  Sender: FDA-Public Use
  Company Number: DE-ABBOTT-11P-062-0871137-00

PATIENT
  Sex: Male

DRUGS (2)
  1. CICLOSPRIN [Concomitant]
     Indication: PRODUCT USED FOR UNKNOWN INDICATION
  2. HUMIRA [Suspect]
     Indication: PSORIASIS
     Route: 058
     Dates: start: 20110713, end: 20110901

REACTIONS (3)
  - DEPRESSION [None]
  - PSORIATIC ARTHROPATHY [None]
  - HYPERTENSION [None]
